FAERS Safety Report 24402346 (Version 2)
Quarter: 2024Q4

REPORT INFORMATION
  Report Type: Spontaneous
  Country: SA (occurrence: SA)
  Receive Date: 20241007
  Receipt Date: 20241008
  Transmission Date: 20250115
  Serious: Yes (Life-Threatening, Hospitalization)
  Sender: ACCORD
  Company Number: SA-MLMSERVICE-20240919-PI197442-00232-1

PATIENT
  Age: 38 Year
  Sex: Male

DRUGS (3)
  1. MYCOPHENOLATE MOFETIL [Suspect]
     Active Substance: MYCOPHENOLATE MOFETIL
     Indication: Product used for unknown indication
  2. TACROLIMUS [Suspect]
     Active Substance: TACROLIMUS
     Indication: Product used for unknown indication
  3. APIXABAN [Concomitant]
     Active Substance: APIXABAN
     Indication: Peripheral vein thrombosis

REACTIONS (4)
  - Arteriosclerosis [Recovering/Resolving]
  - Haemodynamic instability [Recovering/Resolving]
  - Peripheral artery aneurysm rupture [Recovering/Resolving]
  - Peripheral artery aneurysm [Recovering/Resolving]
